FAERS Safety Report 24728109 (Version 1)
Quarter: 2024Q4

REPORT INFORMATION
  Report Type: Spontaneous
  Country: US (occurrence: None)
  Receive Date: 20241212
  Receipt Date: 20241212
  Transmission Date: 20250114
  Serious: Yes (Hospitalization)
  Sender: Public
  Company Number: None

PATIENT
  Age: 61 Year
  Sex: Male

DRUGS (2)
  1. HYDROCHLOROTHIAZIDE\LISINOPRIL [Suspect]
     Active Substance: HYDROCHLOROTHIAZIDE\LISINOPRIL
     Indication: Hypertension
     Route: 048
     Dates: start: 20230413, end: 20240209
  2. AMLODIPINE BESYLATE [Suspect]
     Active Substance: AMLODIPINE BESYLATE

REACTIONS (5)
  - Angioedema [None]
  - Hypoaesthesia [None]
  - Hypoaesthesia [None]
  - Refusal of treatment by patient [None]
  - Adverse food reaction [None]

NARRATIVE: CASE EVENT DATE: 20240205
